FAERS Safety Report 25124017 (Version 1)
Quarter: 2025Q1

REPORT INFORMATION
  Report Type: Spontaneous
  Country: US (occurrence: None)
  Receive Date: 20250326
  Receipt Date: 20250326
  Transmission Date: 20250409
  Serious: Yes (Hospitalization)
  Sender: INCYTE
  Company Number: US-INCYTE CORPORATION-2025IN002579

PATIENT
  Age: 71 Year

DRUGS (1)
  1. JAKAFI [Suspect]
     Active Substance: RUXOLITINIB
     Indication: Polycythaemia vera
     Dosage: 10 MILLIGRAM, BID

REACTIONS (3)
  - Haematoma muscle [Unknown]
  - Groin pain [Unknown]
  - Pain in extremity [Unknown]
